FAERS Safety Report 7522839-6 (Version None)
Quarter: 2011Q2

REPORT INFORMATION
  Report Type: 
  Country: None (occurrence: None)
  Receive Date: 20110603
  Receipt Date: 20110526
  Transmission Date: 20111010
  Serious: Yes (Hospitalization)
  Sender: FDA-Public Use
  Company Number: PHHY2011IT46184

PATIENT
  Age: 33 Day
  Sex: Female
  Weight: 5.6 kg

DRUGS (2)
  1. PROPRANOLOL [Suspect]
     Indication: ARRHYTHMIA
     Dosage: 2.5 MG, (0.5 MG/KG)
  2. VERAPAMIL [Suspect]
     Indication: ARRHYTHMIA
     Dosage: 0.1 MG/KG, UNK
     Route: 042

REACTIONS (17)
  - PNEUMONIA [None]
  - LOW CARDIAC OUTPUT SYNDROME [None]
  - HYPOKINESIA [None]
  - TOXICITY TO VARIOUS AGENTS [None]
  - ARRHYTHMIA [None]
  - BLOOD CREATINE INCREASED [None]
  - HYPOXIA [None]
  - METABOLIC ACIDOSIS [None]
  - SUPRAVENTRICULAR TACHYCARDIA [None]
  - ANURIA [None]
  - HYPERKALAEMIA [None]
  - TACHYPNOEA [None]
  - HEART RATE DECREASED [None]
  - BRADYCARDIA [None]
  - HAEMODYNAMIC INSTABILITY [None]
  - VENTRICULAR DYSFUNCTION [None]
  - CIRCULATORY COLLAPSE [None]
